FAERS Safety Report 25953791 (Version 1)
Quarter: 2025Q4

REPORT INFORMATION
  Report Type: Spontaneous
  Country: US (occurrence: US)
  Receive Date: 20251023
  Receipt Date: 20251023
  Transmission Date: 20260118
  Serious: Yes (Hospitalization, Other)
  Sender: GLAXOSMITHKLINE
  Company Number: US-GSK-US2025129385

PATIENT
  Sex: Female

DRUGS (3)
  1. LAMICTAL XR [Suspect]
     Active Substance: LAMOTRIGINE
     Indication: Generalised tonic-clonic seizure
     Dosage: 1 DF, QID, 1 TABLET BY MOUTH 4 TIMES A DAY
  2. LAMICTAL [Suspect]
     Active Substance: LAMOTRIGINE
     Indication: Generalised tonic-clonic seizure
     Dosage: 150 MG BY MOUTH SPLIT BETWEEN MORNING AND NIGHT
  3. LORATADINE [Concomitant]
     Active Substance: LORATADINE
     Indication: Hypersensitivity
     Dosage: UNK

REACTIONS (19)
  - Meningitis aseptic [Unknown]
  - Seizure [Unknown]
  - Headache [Unknown]
  - Nausea [Unknown]
  - Palpitations [Unknown]
  - Decreased appetite [Unknown]
  - Fatigue [Unknown]
  - Eating disorder [Unknown]
  - Dysphagia [Unknown]
  - Hyperhidrosis [Unknown]
  - Sensory processing disorder [Not Recovered/Not Resolved]
  - Asthenia [Not Recovered/Not Resolved]
  - Auditory disorder [Not Recovered/Not Resolved]
  - Visual impairment [Not Recovered/Not Resolved]
  - Balance disorder [Not Recovered/Not Resolved]
  - Motion sickness [Not Recovered/Not Resolved]
  - Hypersensitivity [Not Recovered/Not Resolved]
  - Ill-defined disorder [Not Recovered/Not Resolved]
  - Incorrect dose administered [Unknown]
